FAERS Safety Report 22694460 (Version 5)
Quarter: 2024Q1

REPORT INFORMATION
  Report Type: Report from Study
  Country: CA (occurrence: CA)
  Receive Date: 20230712
  Receipt Date: 20240327
  Transmission Date: 20240410
  Serious: Yes (Death, Hospitalization, Other)
  Sender: FDA-Public Use
  Company Number: CA-CELLTRION INC.-2023CA013690

PATIENT

DRUGS (5)
  1. RITUXIMAB [Suspect]
     Active Substance: RITUXIMAB
     Indication: Systemic lupus erythematosus
     Dosage: 1000 MILLIGRAM
     Route: 042
  2. RITUXIMAB [Suspect]
     Active Substance: RITUXIMAB
     Dosage: 1000 MILLIGRAM
     Route: 042
  3. ACETAMINOPHEN [Concomitant]
     Active Substance: ACETAMINOPHEN
     Indication: Product used for unknown indication
     Dosage: 650.0 MG
     Route: 048
  4. DIPHENHYDRAMINE [Concomitant]
     Active Substance: DIPHENHYDRAMINE
     Indication: Product used for unknown indication
     Dosage: 50 MG
     Route: 048
  5. METHYLPREDNISOLONE [Concomitant]
     Active Substance: METHYLPREDNISOLONE
     Indication: Product used for unknown indication
     Dosage: 100.0 MG
     Route: 042

REACTIONS (10)
  - Death [Fatal]
  - Fall [Fatal]
  - Oxygen saturation decreased [Fatal]
  - Syncope [Fatal]
  - Heart rate increased [Fatal]
  - Cardiac disorder [Fatal]
  - Pneumonia [Fatal]
  - Off label use [Fatal]
  - Product dose omission issue [Fatal]
  - Intentional product use issue [Unknown]
